FAERS Safety Report 8740464 (Version 3)
Quarter: 2013Q2

REPORT INFORMATION
  Report Type: Spontaneous
  Country: US (occurrence: US)
  Receive Date: 20120823
  Receipt Date: 20130522
  Transmission Date: 20140414
  Serious: No
  Sender: FDA-Public Use
  Company Number: US-009507513-1208USA006091

PATIENT
  Age: 4 Year
  Sex: Female

DRUGS (2)
  1. SINGULAIR [Suspect]
     Indication: HYPERSENSITIVITY
     Dosage: 10 MG, QD
     Route: 048
     Dates: start: 20120711, end: 20120810
  2. SINGULAIR [Suspect]
     Indication: ASTHMA

REACTIONS (3)
  - Vomiting [Recovering/Resolving]
  - Drug dispensing error [Unknown]
  - Prescribed overdose [Unknown]
